FAERS Safety Report 24756975 (Version 1)
Quarter: 2024Q4

REPORT INFORMATION
  Report Type: Spontaneous
  Country: CN (occurrence: CN)
  Receive Date: 20241220
  Receipt Date: 20241220
  Transmission Date: 20250115
  Serious: Yes (Other)
  Sender: ORGANON
  Company Number: CN-ORGANON-O2412CHN000104

PATIENT
  Age: 40 Year
  Sex: Female

DRUGS (1)
  1. IMPLANON [Suspect]
     Active Substance: ETONOGESTREL
     Dosage: 1 IMPLANT 68 MG, LEFT UPPER ARM
     Route: 058
     Dates: start: 20240626, end: 20241202

REACTIONS (6)
  - Abnormal uterine bleeding [Recovered/Resolved]
  - Dizziness [Recovered/Resolved]
  - Poor quality sleep [Recovered/Resolved]
  - Chest discomfort [Recovered/Resolved]
  - Asthenia [Recovered/Resolved]
  - Volume blood decreased [Recovered/Resolved]
